FAERS Safety Report 12701802 (Version 2)
Quarter: 2019Q2

REPORT INFORMATION
  Report Type: Spontaneous
  Country: US (occurrence: US)
  Receive Date: 20160831
  Receipt Date: 20190607
  Transmission Date: 20190711
  Serious: No
  Sender: FDA-Public Use
  Company Number: US-JAZZ-2016-US-007441

PATIENT
  Sex: Female
  Weight: 45.8 kg

DRUGS (21)
  1. GUAIFENESIN. [Concomitant]
     Active Substance: GUAIFENESIN
  2. NEXIUM 24HR [Concomitant]
     Active Substance: ESOMEPRAZOLE MAGNESIUM
  3. XYREM [Suspect]
     Active Substance: SODIUM OXYBATE
     Indication: FIBROMYALGIA
     Dosage: 2.25 G, BID
     Route: 048
     Dates: start: 200306, end: 200308
  4. METHOCARBAMOL. [Concomitant]
     Active Substance: METHOCARBAMOL
  5. LYRICA [Concomitant]
     Active Substance: PREGABALIN
  6. GLUCOSAMINE CHONDROITIN SULFATE [Concomitant]
  7. VAGIFEM [Concomitant]
     Active Substance: ESTRADIOL
  8. VITAMIN D3 [Concomitant]
     Active Substance: CHOLECALCIFEROL
  9. FLAXSEED [Concomitant]
     Active Substance: FLAX SEED
  10. ZOLOFT [Concomitant]
     Active Substance: SERTRALINE HYDROCHLORIDE
  11. XYREM [Suspect]
     Active Substance: SODIUM OXYBATE
     Dosage: 3 G, BID
     Route: 048
     Dates: start: 200308
  12. NALTREXONE [Concomitant]
     Active Substance: NALTREXONE
  13. NEURONTIN [Concomitant]
     Active Substance: GABAPENTIN
  14. METOCLOPRAMIDE. [Concomitant]
     Active Substance: METOCLOPRAMIDE
  15. TRAZODONE [Concomitant]
     Active Substance: TRAZODONE HYDROCHLORIDE
  16. CITRACAL F [Concomitant]
  17. FISH OIL [Concomitant]
     Active Substance: FISH OIL
  18. TRAMADOL HCL [Concomitant]
     Active Substance: TRAMADOL HYDROCHLORIDE
  19. ZIANA [Concomitant]
     Active Substance: CLINDAMYCIN PHOSPHATE\TRETINOIN
  20. DARVOCET-N 100 [Concomitant]
     Active Substance: ACETAMINOPHEN\PROPOXYPHENE NAPSYLATE
  21. SUCRALFATE. [Concomitant]
     Active Substance: SUCRALFATE

REACTIONS (1)
  - Gastrooesophageal reflux disease [Recovering/Resolving]
